FAERS Safety Report 23626277 (Version 1)
Quarter: 2024Q1

REPORT INFORMATION
  Report Type: Spontaneous
  Country: US (occurrence: US)
  Receive Date: 20240313
  Receipt Date: 20240313
  Transmission Date: 20240410
  Serious: No
  Sender: FDA-Public Use
  Company Number: US-TRAVERE-2024TVT00236

PATIENT
  Sex: Male

DRUGS (2)
  1. FILSPARI [Suspect]
     Active Substance: SPARSENTAN
     Indication: IgA nephropathy
     Route: 048
     Dates: start: 20240222
  2. FILSPARI [Suspect]
     Active Substance: SPARSENTAN
     Dosage: TWO PILLS A DAY
     Route: 048
     Dates: start: 202403

REACTIONS (1)
  - Incorrect dose administered [Unknown]
